FAERS Safety Report 8946095 (Version 1)
Quarter: 2012Q4

REPORT INFORMATION
  Report Type: 
  Country: US (occurrence: US)
  Receive Date: 20121204
  Receipt Date: 20121204
  Transmission Date: 20130627
  Serious: No
  Sender: FDA-Public Use
  Company Number: US-AMGEN-USASP2012064864

PATIENT
  Age: 50 Year
  Sex: Male
  Weight: 74.83 kg

DRUGS (3)
  1. ENBREL [Suspect]
     Indication: RHEUMATOID ARTHRITIS
     Dosage: 50 mg, qwk
     Dates: start: 20120424
  2. NORCO [Concomitant]
     Dosage: 10/325 mg, tid
     Route: 048
     Dates: start: 20090227
  3. METHYLPREDNISOLONE [Concomitant]
     Dosage: UNK
     Route: 048
     Dates: start: 20090706

REACTIONS (5)
  - Exostosis of jaw [Not Recovered/Not Resolved]
  - Tooth loss [Not Recovered/Not Resolved]
  - Malaise [Not Recovered/Not Resolved]
  - Oral infection [Not Recovered/Not Resolved]
  - Injection site pain [Not Recovered/Not Resolved]
